FAERS Safety Report 19163242 (Version 2)
Quarter: 2021Q2

REPORT INFORMATION
  Report Type: Report from Study
  Country: CA (occurrence: CA)
  Receive Date: 20210421
  Receipt Date: 20210422
  Transmission Date: 20210717
  Serious: Yes (Other)
  Sender: FDA-Public Use
  Company Number: CA-JNJFOC-20210425748

PATIENT
  Age: 53 Year
  Sex: Male
  Weight: 89.1 kg

DRUGS (1)
  1. STELARA [Suspect]
     Active Substance: USTEKINUMAB
     Indication: CROHN^S DISEASE
     Dosage: ON 13?APR?2021, THE PATIENT RECEIVED 16TH USTEKINUMAB INFUSION FOR DOSE OF 90 MG AND PARTIAL HARVEY?
     Route: 058
     Dates: start: 20181220

REACTIONS (2)
  - Abdominal pain [Unknown]
  - Wound infection [Recovered/Resolved]

NARRATIVE: CASE EVENT DATE: 20210412
